FAERS Safety Report 18435645 (Version 1)
Quarter: 2020Q4

REPORT INFORMATION
  Report Type: Spontaneous
  Country: US (occurrence: US)
  Receive Date: 20201028
  Receipt Date: 20201028
  Transmission Date: 20210114
  Serious: No
  Sender: FDA-Public Use
  Company Number: None

PATIENT
  Age: 26 Year
  Sex: Female
  Weight: 112.49 kg

DRUGS (1)
  1. NUVARING GENETIC 0.12-0.015MG/24 HOUR RING [Suspect]
     Active Substance: ETHINYL ESTRADIOL\ETONOGESTREL
     Dosage: 0.12-0.015MG/24 HOUR ING
     Dates: start: 20200601

REACTIONS (2)
  - Product substitution issue [None]
  - Metrorrhagia [None]

NARRATIVE: CASE EVENT DATE: 20200601
